FAERS Safety Report 22589584 (Version 1)
Quarter: 2023Q2

REPORT INFORMATION
  Report Type: Spontaneous
  Country: FI (occurrence: FI)
  Receive Date: 20230612
  Receipt Date: 20230612
  Transmission Date: 20230722
  Serious: Yes (Life-Threatening)
  Sender: FDA-Public Use
  Company Number: None

PATIENT
  Age: 48 Year
  Sex: Female

DRUGS (3)
  1. DISULFIRAM [Suspect]
     Active Substance: DISULFIRAM
     Indication: Alcoholism
     Dosage: 200 MILLIGRAM DAILY; 200,MG,DAILY
     Dates: start: 20230311, end: 20230426
  2. VENLAFAXINE [Concomitant]
     Active Substance: VENLAFAXINE HYDROCHLORIDE
     Indication: Depression
     Dosage: 225 MILLIGRAM DAILY; 225,MG,DAILY
     Dates: start: 20230505
  3. IBUPROFEN [Concomitant]
     Active Substance: IBUPROFEN
     Indication: Product used for unknown indication
     Dosage: ,,AS NECESSARY

REACTIONS (2)
  - Liver injury [Recovered/Resolved with Sequelae]
  - Hepatic failure [Recovered/Resolved with Sequelae]

NARRATIVE: CASE EVENT DATE: 20230421
